FAERS Safety Report 13981888 (Version 1)
Quarter: 2017Q3

REPORT INFORMATION
  Report Type: Spontaneous
  Country: US (occurrence: US)
  Receive Date: 20170918
  Receipt Date: 20170918
  Transmission Date: 20171128
  Serious: No
  Sender: FDA-Public Use
  Company Number: US-ALVOGEN-2016-ALVOGEN-087225

PATIENT
  Sex: Female
  Weight: 60.01 kg

DRUGS (2)
  1. CLINDAMYCIN. [Suspect]
     Active Substance: CLINDAMYCIN
     Indication: TOOTH DISORDER
     Route: 048
     Dates: start: 201607
  2. CLINDAMYCIN. [Suspect]
     Active Substance: CLINDAMYCIN
     Indication: PRODUCT USED FOR UNKNOWN INDICATION
     Route: 048
     Dates: start: 201609

REACTIONS (4)
  - Nausea [Recovered/Resolved]
  - Urticaria [Recovered/Resolved]
  - Dehydration [Recovered/Resolved]
  - Hypersensitivity [Unknown]
